FAERS Safety Report 25509199 (Version 1)
Quarter: 2025Q3

REPORT INFORMATION
  Report Type: Spontaneous
  Country: US (occurrence: US)
  Receive Date: 20250703
  Receipt Date: 20250703
  Transmission Date: 20251020
  Serious: Yes (Hospitalization, Other)
  Sender: UROGEN PHARMA
  Company Number: US-UROGEN PHARMA LTD.-2025-UGN-000103

PATIENT

DRUGS (4)
  1. JELMYTO [Suspect]
     Active Substance: MITOMYCIN
     Indication: Product used for unknown indication
     Dates: start: 20250429, end: 20250429
  2. JELMYTO [Suspect]
     Active Substance: MITOMYCIN
     Dates: start: 20250506, end: 20250506
  3. JELMYTO [Suspect]
     Active Substance: MITOMYCIN
     Dates: start: 20250513, end: 20250513
  4. JELMYTO [Suspect]
     Active Substance: MITOMYCIN
     Dates: start: 20250610, end: 20250610

REACTIONS (2)
  - Renal abscess [Unknown]
  - Thrombocytopenia [Unknown]

NARRATIVE: CASE EVENT DATE: 20250101
